FAERS Safety Report 7157255-2 (Version None)
Quarter: 2010Q4

REPORT INFORMATION
  Report Type: 
  Country: None (occurrence: None)
  Receive Date: 20101214
  Receipt Date: 20101203
  Transmission Date: 20110411
  Serious: Yes (Death)
  Sender: FDA-Public Use
  Company Number: GXKR2010DE13739

PATIENT
  Age: 72 Year
  Sex: Male

DRUGS (4)
  1. TACROLIMUS [Suspect]
     Indication: IMMUNOSUPPRESSION
     Dosage: 0.01 MG/KG BODY WEIGHT
     Route: 042
  2. MESALAMINE [Concomitant]
     Dosage: UNK
     Route: 061
  3. MESALAMINE [Concomitant]
  4. STEROIDS NOS [Concomitant]
     Dosage: UNK
     Route: 042

REACTIONS (4)
  - MECHANICAL VENTILATION [None]
  - PNEUMOCYSTIS JIROVECI PNEUMONIA [None]
  - PULMONARY EMBOLISM [None]
  - RESPIRATORY FAILURE [None]
